FAERS Safety Report 17376483 (Version 1)
Quarter: 2020Q1

REPORT INFORMATION
  Report Type: Spontaneous
  Country: BR (occurrence: BR)
  Receive Date: 20200206
  Receipt Date: 20200206
  Transmission Date: 20200409
  Serious: Yes (Other)
  Sender: FDA-Public Use
  Company Number: NVSC2020BR028608

PATIENT
  Age: 33 Year
  Sex: Male

DRUGS (3)
  1. CLONAZEPAM. [Suspect]
     Active Substance: CLONAZEPAM
     Indication: SUICIDE ATTEMPT
     Dosage: UNK
     Route: 065
  2. ALCOHOL. [Suspect]
     Active Substance: ALCOHOL
     Indication: SUICIDE ATTEMPT
     Dosage: UNK
     Route: 065
  3. PHENOBARBITAL. [Suspect]
     Active Substance: PHENOBARBITAL
     Indication: SUICIDE ATTEMPT
     Dosage: UNK
     Route: 065

REACTIONS (10)
  - Suicide attempt [Unknown]
  - Neuropathic muscular atrophy [Unknown]
  - Ischaemia [Unknown]
  - Sciatic nerve neuropathy [Unknown]
  - Rhabdomyolysis [Unknown]
  - Overdose [Unknown]
  - Areflexia [Unknown]
  - Muscle necrosis [Unknown]
  - Peroneal nerve palsy [Unknown]
  - Sensory disturbance [Unknown]
